FAERS Safety Report 8186355-3 (Version None)
Quarter: 2012Q1

REPORT INFORMATION
  Report Type: 
  Country: None (occurrence: None)
  Receive Date: 20120306
  Receipt Date: 20120227
  Transmission Date: 20120608
  Serious: Yes (Hospitalization)
  Sender: FDA-Public Use
  Company Number: US-BAYER-2011-015868

PATIENT
  Age: 24 Year
  Sex: Female
  Weight: 109 kg

DRUGS (6)
  1. YAZ [Suspect]
     Dosage: UNK
     Dates: start: 20030101, end: 20080101
  2. YASMIN [Suspect]
     Dosage: UNK
     Dates: start: 20030101, end: 20080101
  3. KEFLEX [Concomitant]
  4. DROSPIRENONE AND ETHINYL ESTRADIOL [Suspect]
     Dosage: UNK
     Dates: start: 20030101, end: 20080101
  5. AZITHROMYCIN [Concomitant]
     Dosage: 250 MG, UNK
     Dates: start: 20080919
  6. CEPHALEXIN [Concomitant]
     Dosage: 500 MG, UNK
     Dates: start: 20081013

REACTIONS (7)
  - ANXIETY [None]
  - INJURY [None]
  - DYSPNOEA [None]
  - BACK PAIN [None]
  - PULMONARY EMBOLISM [None]
  - PAIN [None]
  - ANHEDONIA [None]
